FAERS Safety Report 5577196-1 (Version None)
Quarter: 2007Q4

REPORT INFORMATION
  Report Type: 
  Country: None (occurrence: None)
  Receive Date: 20071228
  Receipt Date: 20071221
  Transmission Date: 20080405
  Serious: Yes (Death)
  Sender: FDA-Public Use
  Company Number: MX-GENENTECH-253192

PATIENT
  Sex: Female
  Weight: 65.5 kg

DRUGS (2)
  1. BEVACIZUMAB [Suspect]
     Indication: BREAST CANCER
     Dosage: 960 MG, Q3W
     Route: 042
     Dates: start: 20070409
  2. CAPECITABINE [Suspect]
     Indication: BREAST CANCER
     Dosage: 3000 MG, QD
     Dates: start: 20070117

REACTIONS (1)
  - DEATH [None]
